FAERS Safety Report 25995354 (Version 1)
Quarter: 2025Q4

REPORT INFORMATION
  Report Type: Spontaneous
  Country: US (occurrence: US)
  Receive Date: 20251104
  Receipt Date: 20251104
  Transmission Date: 20260118
  Serious: No
  Sender: SUNOVION
  Company Number: US-SMPA-2025SPA013109

PATIENT
  Age: 25 Year
  Sex: Female

DRUGS (1)
  1. MYFEMBREE [Suspect]
     Active Substance: ESTRADIOL HEMIHYDRATE\NORETHINDRONE ACETATE\RELUGOLIX
     Indication: Endometriosis
     Dosage: UNKNOWN
     Route: 048

REACTIONS (2)
  - Cyst [Unknown]
  - Intermenstrual bleeding [Unknown]
